FAERS Safety Report 17095224 (Version 1)
Quarter: 2019Q4

REPORT INFORMATION
  Report Type: Spontaneous
  Country: US (occurrence: US)
  Receive Date: 20191104
  Receipt Date: 20191104
  Transmission Date: 20200122
  Serious: Yes (Other)
  Sender: FDA-Public Use
  Company Number: None

PATIENT
  Age: 69 Year
  Sex: Female

DRUGS (1)
  1. CEFTRIAXONE SODIUM 2 GM APOTEX [Suspect]
     Active Substance: CEFTRIAXONE SODIUM
     Indication: CELLULITIS
     Route: 042
     Dates: start: 20190920, end: 20191020

REACTIONS (3)
  - Rash [None]
  - Drug ineffective [None]
  - Rash pruritic [None]

NARRATIVE: CASE EVENT DATE: 20191017
